FAERS Safety Report 6171256-2 (Version None)
Quarter: 2009Q2

REPORT INFORMATION
  Report Type: 
  Country: None (occurrence: None)
  Receive Date: 20090429
  Receipt Date: 20090423
  Transmission Date: 20091009
  Serious: Yes (Life-Threatening)
  Sender: FDA-Public Use
  Company Number: JP-ASTRAZENECA-2009AC01000

PATIENT
  Age: 29105 Day
  Sex: Male

DRUGS (10)
  1. MEROPEN [Suspect]
     Indication: PNEUMONIA
     Dates: start: 20090323
  2. GLYCEREB [Concomitant]
     Dates: start: 20090220
  3. DECADRON [Concomitant]
     Dates: start: 20090220
  4. SOLITA-T NO3 [Concomitant]
     Dates: start: 20090316
  5. ADONA [Concomitant]
     Dates: start: 20090316
  6. TRANSAMIN [Concomitant]
     Dates: start: 20090316
  7. TAGAMET [Concomitant]
     Dates: start: 20090322
  8. MORPHINE HYDROCHLORIDE [Concomitant]
     Dates: start: 20090323
  9. SERENACE [Concomitant]
     Dates: start: 20090323
  10. ISOTONIC SODIUM CHLORIDE SOLUTION [Concomitant]
     Dates: start: 20090323

REACTIONS (1)
  - SEPTIC SHOCK [None]
